FAERS Safety Report 20587490 (Version 6)
Quarter: 2022Q3

REPORT INFORMATION
  Report Type: Report from Study
  Country: US (occurrence: US)
  Receive Date: 20220314
  Receipt Date: 20220628
  Transmission Date: 20221026
  Serious: No
  Sender: FDA-Public Use
  Company Number: US-NOVARTISTESTPH-NVSC2022US057795

PATIENT
  Sex: Male

DRUGS (1)
  1. ENTRESTO [Suspect]
     Active Substance: SACUBITRIL\VALSARTAN
     Indication: Cardiac disorder
     Dosage: 70 MG (24/46 MILLIGRAM), BID
     Route: 048
     Dates: start: 202102

REACTIONS (3)
  - Dizziness postural [Unknown]
  - Ejection fraction abnormal [Recovering/Resolving]
  - Product use in unapproved indication [Unknown]
